FAERS Safety Report 23984633 (Version 1)
Quarter: 2024Q2

REPORT INFORMATION
  Report Type: Report from Study
  Country: BR (occurrence: BR)
  Receive Date: 20240618
  Receipt Date: 20240618
  Transmission Date: 20240716
  Serious: Yes (Other)
  Sender: FDA-Public Use
  Company Number: BR-002147023-NVSC2024BR125551

PATIENT
  Sex: Female

DRUGS (1)
  1. FEMARA [Suspect]
     Active Substance: LETROZOLE
     Indication: Product used for unknown indication
     Dosage: UNK, 2 AND ?HALF? MG
     Route: 065
     Dates: start: 202109

REACTIONS (15)
  - Breast cancer [Unknown]
  - Neuropathy peripheral [Unknown]
  - Syndactyly [Unknown]
  - Pain [Recovering/Resolving]
  - Musculoskeletal stiffness [Not Recovered/Not Resolved]
  - Adverse drug reaction [Unknown]
  - Finger deformity [Recovering/Resolving]
  - Foot deformity [Not Recovered/Not Resolved]
  - Injury [Unknown]
  - Skin discolouration [Unknown]
  - Eye disorder [Unknown]
  - Back pain [Unknown]
  - Neck pain [Unknown]
  - Spinal pain [Unknown]
  - Pain in extremity [Unknown]
